FAERS Safety Report 15919270 (Version 1)
Quarter: 2019Q1

REPORT INFORMATION
  Report Type: Spontaneous
  Country: US (occurrence: US)
  Receive Date: 20190205
  Receipt Date: 20190205
  Transmission Date: 20190417
  Serious: No
  Sender: FDA-Public Use
  Company Number: US-ROCHE-2079111

PATIENT
  Sex: Female
  Weight: 58.11 kg

DRUGS (1)
  1. XOLAIR [Suspect]
     Active Substance: OMALIZUMAB
     Indication: URTICARIA CHRONIC
     Dosage: TWO 150 MG INJECTIONS PER DOSE ;ONGOING: YES
     Route: 058

REACTIONS (1)
  - Malaise [Unknown]
